FAERS Safety Report 17154125 (Version 1)
Quarter: 2019Q4

REPORT INFORMATION
  Report Type: Report from Study
  Country: CA (occurrence: CA)
  Receive Date: 20191213
  Receipt Date: 20191213
  Transmission Date: 20200122
  Serious: Yes (Death, Other)
  Sender: FDA-Public Use
  Company Number: PHHY2016CA068164

PATIENT
  Age: 81 Year
  Sex: Female

DRUGS (3)
  1. SANDOSTATIN LAR DEPOT [Suspect]
     Active Substance: OCTREOTIDE ACETATE
     Dosage: 60 MG, QMO (EVERY 28 DAYS)
     Route: 030
  2. METFORMIN [Concomitant]
     Active Substance: METFORMIN HYDROCHLORIDE
     Indication: DIABETES MELLITUS
     Dosage: 250 MG, BID
     Route: 048
     Dates: start: 20180328
  3. SANDOSTATIN LAR DEPOT [Suspect]
     Active Substance: OCTREOTIDE ACETATE
     Indication: CARCINOID TUMOUR
     Dosage: 30 MG, QMO (EVERY 4 WEEKS)
     Route: 030
     Dates: start: 20160317

REACTIONS (11)
  - Herpes zoster [Unknown]
  - Arthralgia [Unknown]
  - Blood pressure systolic increased [Unknown]
  - Malignant neoplasm progression [Unknown]
  - Diarrhoea [Unknown]
  - Abdominal pain upper [Not Recovered/Not Resolved]
  - Body temperature decreased [Unknown]
  - Constipation [Unknown]
  - Death [Fatal]
  - Carcinoid tumour [Unknown]
  - Fall [Unknown]

NARRATIVE: CASE EVENT DATE: 20160513
